FAERS Safety Report 5090536-5 (Version None)
Quarter: 2006Q3

REPORT INFORMATION
  Report Type: 
  Country: None (occurrence: None)
  Receive Date: 20060828
  Receipt Date: 20060530
  Transmission Date: 20061208
  Serious: Yes (Hospitalization)
  Sender: FDA-Public Use
  Company Number: US-GLAXOSMITHKLINE-A0607262A

PATIENT
  Age: 25 Year
  Sex: Female

DRUGS (4)
  1. WELLBUTRIN [Suspect]
     Dosage: 150MG PER DAY
     Route: 048
     Dates: start: 20050101, end: 20050101
  2. XANAX [Suspect]
  3. PREVACID [Concomitant]
  4. MARIJUANA [Concomitant]

REACTIONS (1)
  - GRAND MAL CONVULSION [None]
